FAERS Safety Report 4709437-4 (Version None)
Quarter: 2005Q3

REPORT INFORMATION
  Report Type: 
  Country: None (occurrence: None)
  Receive Date: 20050708
  Receipt Date: 20020509
  Transmission Date: 20060218
  Serious: Yes (Life-Threatening, Hospitalization, Other)
  Sender: FDA-Public Use
  Company Number: US-GLAXOSMITHKLINE-A0371852A

PATIENT
  Age: 26 Year
  Sex: Male
  Weight: 86.4 kg

DRUGS (1)
  1. PAXIL [Suspect]
     Indication: DEPRESSION
     Dosage: 20MG PER DAY
     Route: 048
     Dates: start: 20020313

REACTIONS (8)
  - HOMICIDAL IDEATION [None]
  - INJURY [None]
  - INSOMNIA [None]
  - INTENTIONAL MISUSE [None]
  - MURDER [None]
  - RESTLESSNESS [None]
  - SUICIDAL IDEATION [None]
  - SUICIDE ATTEMPT [None]
